FAERS Safety Report 5702156-7 (Version None)
Quarter: 2008Q2

REPORT INFORMATION
  Report Type: 
  Country: None (occurrence: None)
  Receive Date: 20080411
  Receipt Date: 20080402
  Transmission Date: 20081010
  Serious: Yes (Other)
  Sender: FDA-Public Use
  Company Number: US-AMGEN-US272604

PATIENT
  Sex: Female

DRUGS (9)
  1. ENBREL [Suspect]
     Indication: RHEUMATOID ARTHRITIS
     Route: 058
     Dates: start: 20030129, end: 20031107
  2. METHOTREXATE [Concomitant]
     Route: 065
     Dates: start: 20000101
  3. FOLIC ACID [Concomitant]
     Route: 065
     Dates: start: 20000101
  4. VIOXX [Concomitant]
     Route: 065
     Dates: start: 20020101, end: 20031107
  5. HYDROXYCHLOROQUINE [Concomitant]
     Route: 065
     Dates: start: 20031107
  6. PRILOSEC [Concomitant]
     Route: 065
     Dates: start: 20030411, end: 20031107
  7. PREDNISONE [Concomitant]
     Route: 065
     Dates: start: 20000101, end: 20031107
  8. PYRIDOXINE [Concomitant]
     Route: 065
     Dates: start: 20030129, end: 20031107
  9. ISONIAZID [Concomitant]
     Route: 065
     Dates: start: 20030129, end: 20031107

REACTIONS (1)
  - LUPUS-LIKE SYNDROME [None]
